FAERS Safety Report 24083607 (Version 4)
Quarter: 2025Q2

REPORT INFORMATION
  Report Type: Report from Study
  Country: CA (occurrence: CA)
  Receive Date: 20240712
  Receipt Date: 20250403
  Transmission Date: 20250717
  Serious: Yes (Other)
  Sender: TAKEDA
  Company Number: CA-TAKEDA-2024TUS070371

PATIENT
  Age: 51 Year
  Sex: Male

DRUGS (4)
  1. VEDOLIZUMAB [Suspect]
     Active Substance: VEDOLIZUMAB
     Indication: Colitis ulcerative
  2. VEDOLIZUMAB [Suspect]
     Active Substance: VEDOLIZUMAB
     Indication: Colitis ulcerative
     Dosage: 108 MILLIGRAM, Q2WEEKS
     Dates: start: 20230606
  3. VEDOLIZUMAB [Suspect]
     Active Substance: VEDOLIZUMAB
     Dosage: 108 MILLIGRAM, 1/WEEK
     Dates: start: 20240924
  4. STELARA [Concomitant]
     Active Substance: USTEKINUMAB

REACTIONS (9)
  - Haematochezia [Unknown]
  - Frequent bowel movements [Unknown]
  - Remission not achieved [Unknown]
  - Diarrhoea [Unknown]
  - Defaecation urgency [Unknown]
  - Drug ineffective [Unknown]
  - Off label use [Unknown]
  - Malaise [Unknown]
  - Flatulence [Unknown]

NARRATIVE: CASE EVENT DATE: 20240924
